FAERS Safety Report 10243077 (Version 1)
Quarter: 2014Q2

REPORT INFORMATION
  Report Type: Spontaneous
  Country: US (occurrence: None)
  Receive Date: 20140613
  Receipt Date: 20140613
  Transmission Date: 20141212
  Serious: Yes (Other)
  Sender: FDA-Public Use
  Company Number: CIO14040146

PATIENT
  Sex: Male

DRUGS (1)
  1. PEPTO BISMOL [Suspect]
     Dosage: UNKNOWN, ORAL
     Route: 048

REACTIONS (4)
  - Pharyngeal oedema [None]
  - Hypersensitivity [None]
  - Asthma [None]
  - Drug ineffective [None]
